FAERS Safety Report 12873866 (Version 1)
Quarter: 2016Q4

REPORT INFORMATION
  Report Type: Spontaneous
  Country: US (occurrence: US)
  Receive Date: 20161021
  Receipt Date: 20161021
  Transmission Date: 20170207
  Serious: No
  Sender: FDA-Public Use
  Company Number: US-ALLERGAN-1648995

PATIENT
  Age: 59 Year
  Sex: Female
  Weight: 82.54 kg

DRUGS (1)
  1. LIPASE 3,000USP;AMYLASE 16,000USP;PROTEASE 10,000USP CAP [Suspect]
     Active Substance: AMYLASE\LIPASE\PROTEASE
     Indication: PANCREATIC INSUFFICIENCY
     Dosage: 2 PILLS 8X A DAY
     Route: 048
     Dates: start: 201511

REACTIONS (8)
  - Nausea [Not Recovered/Not Resolved]
  - Malabsorption [Not Recovered/Not Resolved]
  - Flatulence [Not Recovered/Not Resolved]
  - Constipation [Not Recovered/Not Resolved]
  - Chest pain [Not Recovered/Not Resolved]
  - Product substitution issue [Not Recovered/Not Resolved]
  - Malaise [Not Recovered/Not Resolved]
  - Eructation [Not Recovered/Not Resolved]

NARRATIVE: CASE EVENT DATE: 201511
